FAERS Safety Report 25844216 (Version 1)
Quarter: 2025Q3

REPORT INFORMATION
  Report Type: Spontaneous
  Country: TW (occurrence: TW)
  Receive Date: 20250925
  Receipt Date: 20250925
  Transmission Date: 20251021
  Serious: Yes (Hospitalization)
  Sender: MERCK SHARP & DOHME LLC
  Company Number: TW-009507513-2331468

PATIENT
  Age: 45 Year
  Sex: Male

DRUGS (2)
  1. PEMBROLIZUMAB [Suspect]
     Active Substance: PEMBROLIZUMAB
     Indication: Nasopharyngeal cancer
  2. NIVOLUMAB [Concomitant]
     Active Substance: NIVOLUMAB

REACTIONS (2)
  - Acquired syringomyelia [Recovering/Resolving]
  - Malignant neoplasm progression [Recovering/Resolving]
